FAERS Safety Report 6493105-5 (Version None)
Quarter: 2009Q4

REPORT INFORMATION
  Report Type: 
  Country: None (occurrence: None)
  Receive Date: 20091214
  Receipt Date: 20091111
  Transmission Date: 20100525
  Serious: No
  Sender: FDA-Public Use
  Company Number: US-BAYER-200939542NA

PATIENT
  Age: 46 Year
  Sex: Female

DRUGS (3)
  1. MIRENA [Suspect]
     Indication: ENDOMETRIOSIS
     Dosage: CONTINUOUS
     Route: 015
     Dates: start: 20090801
  2. ANTIBIOTICS [Concomitant]
     Indication: CYSTITIS
  3. CEPHALEXIN [Concomitant]
     Indication: CYSTITIS

REACTIONS (1)
  - CYSTITIS [None]
